FAERS Safety Report 4622439-1 (Version None)
Quarter: 2005Q1

REPORT INFORMATION
  Report Type: 
  Country: None (occurrence: None)
  Receive Date: 20050325
  Receipt Date: 20050325
  Transmission Date: 20050727
  Serious: Yes (Hospitalization)
  Sender: FDA-Public Use
  Company Number: None

PATIENT
  Age: 76 Year
  Sex: Male

DRUGS (1)
  1. CAPECITABINE -(ROCHE PHARMACEUTICAL STUDY) [Suspect]
     Indication: RECTAL CANCER
     Dosage: 4600 MG QD (PO) [6TH POST OP CYCLE ]
     Route: 048
     Dates: start: 20041206, end: 20041219

REACTIONS (3)
  - CONSTIPATION [None]
  - DEHYDRATION [None]
  - DIARRHOEA [None]
